FAERS Safety Report 9970174 (Version 2)
Quarter: 2014Q1

REPORT INFORMATION
  Report Type: Spontaneous
  Country: GB (occurrence: GB)
  Receive Date: 20140306
  Receipt Date: 20140306
  Transmission Date: 20141002
  Serious: Yes (Other)
  Sender: FDA-Public Use
  Company Number: GB-ASTELLAS-2014EU000413

PATIENT
  Age: 81 Year
  Sex: Male
  Weight: 98.5 kg

DRUGS (2)
  1. BETMIGA [Suspect]
     Indication: POLLAKIURIA
     Dosage: 25 MG, UNKNOWN/D
     Route: 048
     Dates: start: 20131023
  2. RIVASTIGMINE [Concomitant]
     Indication: DEMENTIA
     Dosage: 1.5 MG, BID
     Route: 048
     Dates: start: 20131002, end: 20131223

REACTIONS (1)
  - Delirium [Recovered/Resolved]
